FAERS Safety Report 8880270 (Version 1)
Quarter: 2012Q4

REPORT INFORMATION
  Report Type: 
  Country: BR (occurrence: BR)
  Receive Date: 20121101
  Receipt Date: 20121101
  Transmission Date: 20130627
  Serious: Yes (Other)
  Sender: FDA-Public Use
  Company Number: BR-ASTRAZENECA-2012SE81501

PATIENT
  Age: 77 Year
  Sex: Female

DRUGS (5)
  1. CRESTOR [Suspect]
     Indication: BLOOD CHOLESTEROL INCREASED
     Route: 048
     Dates: start: 201210
  2. ASA [Concomitant]
     Route: 048
  3. ASPIRIN [Concomitant]
     Route: 048
  4. GINKO BILOBA [Concomitant]
     Route: 048
  5. CLOPIDOGREL [Concomitant]
     Route: 048

REACTIONS (1)
  - Malignant melanoma [Not Recovered/Not Resolved]
